FAERS Safety Report 9152422 (Version 1)
Quarter: 2013Q1

REPORT INFORMATION
  Report Type: Spontaneous
  Country: US (occurrence: US)
  Receive Date: 20130308
  Receipt Date: 20130308
  Transmission Date: 20140127
  Serious: Yes (Hospitalization)
  Sender: FDA-Public Use
  Company Number: US-B.I. PHARMACEUTICALS,INC./RIDGEFIELD-2013-BI-06399GL

PATIENT
  Age: 41 Year
  Sex: Male

DRUGS (11)
  1. TELMISARTAN + HYDROCHLOROTHIAZIDE [Suspect]
     Indication: HYPERTENSION
     Route: 048
     Dates: start: 2006
  2. PARACETAMOL [Suspect]
     Indication: PRODUCT USED FOR UNKNOWN INDICATION
     Route: 065
  3. KETONAL [Suspect]
     Indication: PRODUCT USED FOR UNKNOWN INDICATION
     Route: 065
  4. RAMIPRIL [Suspect]
     Indication: HYPERTENSION
     Route: 048
     Dates: start: 2006
  5. BLINDED TRIAL MEDICATION [Concomitant]
     Indication: CONGENITAL CYSTIC KIDNEY DISEASE
     Dates: start: 20120525, end: 20120603
  6. THYROXINE SODIUM [Concomitant]
     Dates: start: 2009
  7. ORNITHINE ASPARTATE [Concomitant]
     Dates: start: 2006, end: 20120603
  8. OMEPRAZOLE [Concomitant]
     Dates: start: 2006, end: 20120603
  9. POTASSIUM CHLORIDE [Concomitant]
     Dates: start: 2006, end: 20120603
  10. GASTROLIT [Concomitant]
     Dates: start: 20120601, end: 20120603
  11. LOPERAMIDE HYDROCHLORIDE [Concomitant]
     Dates: start: 20120601, end: 20120603

REACTIONS (3)
  - Renal failure acute [Recovered/Resolved]
  - Hepatitis acute [Recovered/Resolved]
  - Pancreatic enzyme abnormality [Recovered/Resolved]
